FAERS Safety Report 8386240-8 (Version None)
Quarter: 2012Q2

REPORT INFORMATION
  Report Type: 
  Country: None (occurrence: None)
  Receive Date: 20120525
  Receipt Date: 20120521
  Transmission Date: 20120825
  Serious: Yes (Death, Hospitalization)
  Sender: FDA-Public Use
  Company Number: NO-PFIZER INC-2012071827

PATIENT
  Age: 72 Year
  Sex: Female

DRUGS (3)
  1. AROMASIN [Suspect]
     Indication: BREAST CANCER METASTATIC
     Dosage: 25 MG, 1X/DAY
     Dates: start: 20120302, end: 20120316
  2. IMOVANE [Concomitant]
     Dosage: 3.75 MG, 1X/DAY
  3. VESICARE [Concomitant]
     Dosage: 5 MG, 1X/DAY

REACTIONS (3)
  - HEPATIC FAILURE [None]
  - MULTI-ORGAN FAILURE [None]
  - BLOOD BILIRUBIN INCREASED [None]
